FAERS Safety Report 10680060 (Version 1)
Quarter: 2014Q4

REPORT INFORMATION
  Report Type: Spontaneous
  Country: US (occurrence: US)
  Receive Date: 20141229
  Receipt Date: 20141229
  Transmission Date: 20150529
  Serious: Yes (Hospitalization, Other)
  Sender: FDA-Public Use
  Company Number: US-GLAXOSMITHKLINE-US2014GSK041226

PATIENT
  Sex: Male

DRUGS (1)
  1. MEPRON [Suspect]
     Active Substance: ATOVAQUONE
     Indication: HIV INFECTION
     Dosage: UNK, U
     Route: 065

REACTIONS (3)
  - Hospitalisation [Unknown]
  - Blindness [Unknown]
  - Pneumonia [Unknown]
